FAERS Safety Report 6334881-1 (Version None)
Quarter: 2009Q3

REPORT INFORMATION
  Report Type: 
  Country: None (occurrence: None)
  Receive Date: 20090831
  Receipt Date: 20090824
  Transmission Date: 20100115
  Serious: Yes (Hospitalization)
  Sender: FDA-Public Use
  Company Number: JP-AVENTIS-200912090JP

PATIENT
  Age: 71 Year
  Sex: Male
  Weight: 55 kg

DRUGS (9)
  1. LASIX [Suspect]
     Indication: RENAL FAILURE
     Route: 048
  2. LASIX [Suspect]
     Route: 048
     Dates: end: 20090720
  3. REGPARA [Concomitant]
     Route: 048
     Dates: start: 20090718, end: 20090720
  4. INDERAL                            /00030001/ [Concomitant]
     Indication: ESSENTIAL TREMOR
     Dosage: DOSE: 1 TABLET
     Route: 048
     Dates: start: 20090707, end: 20090720
  5. URSO                               /00465701/ [Concomitant]
     Indication: LIVER DISORDER
     Route: 048
     Dates: start: 20090601, end: 20090720
  6. OMEPRAL [Concomitant]
     Dosage: DOSE: 1 TABLET
     Route: 048
  7. CALTAN [Concomitant]
     Route: 048
     Dates: end: 20090720
  8. ALINAMIN F                         /00257801/ [Concomitant]
     Dosage: DOSE: 1 TABLET
     Route: 048
     Dates: end: 20090720
  9. WARFARIN [Concomitant]
     Dosage: DOSE: 1.5 TABLET
     Route: 048

REACTIONS (2)
  - HYPOGLYCAEMIA [None]
  - LIVER DISORDER [None]
